FAERS Safety Report 5729377-1 (Version None)
Quarter: 2008Q2

REPORT INFORMATION
  Report Type: 
  Country: None (occurrence: None)
  Receive Date: 20080430
  Receipt Date: 20080212
  Transmission Date: 20081010
  Serious: No
  Sender: FDA-Public Use
  Company Number: 2008PV034226

PATIENT
  Age: 33 Year
  Sex: Male
  Weight: 122.4712 kg

DRUGS (10)
  1. SYMLIN [Suspect]
     Indication: TYPE 1 DIABETES MELLITUS
     Dosage: SEE IMAGE
     Route: 058
     Dates: start: 20070101, end: 20070101
  2. SYMLIN [Suspect]
     Indication: TYPE 1 DIABETES MELLITUS
     Dosage: SEE IMAGE
     Route: 058
     Dates: start: 20070101, end: 20070101
  3. SYMLIN [Suspect]
     Indication: TYPE 1 DIABETES MELLITUS
     Dosage: SEE IMAGE
     Route: 058
     Dates: start: 20070101, end: 20070101
  4. SYMLIN [Suspect]
     Indication: TYPE 1 DIABETES MELLITUS
     Dosage: SEE IMAGE
     Route: 058
     Dates: start: 20070101, end: 20070101
  5. SYMLIN [Suspect]
     Indication: TYPE 1 DIABETES MELLITUS
     Dosage: SEE IMAGE
     Route: 058
     Dates: start: 20080101, end: 20080101
  6. SYMLIN [Suspect]
     Indication: TYPE 1 DIABETES MELLITUS
     Dosage: SEE IMAGE
     Route: 058
     Dates: start: 20080101, end: 20080101
  7. SYMLIN [Suspect]
     Indication: TYPE 1 DIABETES MELLITUS
     Dosage: SEE IMAGE
     Route: 058
     Dates: start: 20080101, end: 20080101
  8. SYMLIN [Suspect]
     Indication: TYPE 1 DIABETES MELLITUS
     Dosage: SEE IMAGE
     Route: 058
     Dates: start: 20080101
  9. LANTUS [Concomitant]
  10. HUMALOG [Concomitant]

REACTIONS (4)
  - BLOOD GLUCOSE INCREASED [None]
  - FOOD AVERSION [None]
  - NAUSEA [None]
  - PROSTATE INFECTION [None]
